FAERS Safety Report 8191388-7 (Version None)
Quarter: 2012Q1

REPORT INFORMATION
  Report Type: 
  Country: None (occurrence: None)
  Receive Date: 20120307
  Receipt Date: 20111223
  Transmission Date: 20120608
  Serious: No
  Sender: FDA-Public Use
  Company Number: US-ASTRAZENECA-2011SE78116

PATIENT
  Sex: Female

DRUGS (3)
  1. ZOMIG [Suspect]
     Route: 065
  2. IMITREX [Suspect]
     Route: 065
  3. MAXALT [Suspect]
     Indication: MIGRAINE
     Route: 065

REACTIONS (2)
  - TREMOR [None]
  - PALPITATIONS [None]
